FAERS Safety Report 7965640 (Version 4)
Quarter: 2013Q2

REPORT INFORMATION
  Report Type: Report from Study
  Country: FR (occurrence: FR)
  Receive Date: 20110529
  Receipt Date: 20130625
  Transmission Date: 20140414
  Serious: Yes (Death, Life-Threatening, Hospitalization)
  Sender: FDA-Public Use
  Company Number: FR-BRISTOL-MYERS SQUIBB COMPANY-15778566

PATIENT
  Age: 62 Year
  Sex: 0
  Weight: 82 kg

DRUGS (12)
  1. CISPLATIN [Suspect]
     Indication: NON-SMALL CELL LUNG CANCER STAGE IV
     Dosage: RECENT INF:27APR2011
     Route: 042
     Dates: start: 20110308
  2. GEMZAR [Suspect]
     Indication: NON-SMALL CELL LUNG CANCER STAGE IV
     Dosage: RECENT INF:4MAY2011
     Route: 042
     Dates: start: 20110308
  3. DOMPERIDONE [Concomitant]
     Dates: start: 20110308
  4. PRISTINAMYCIN [Concomitant]
     Dates: start: 20110511, end: 20110519
  5. KARDEGIC [Concomitant]
     Dates: start: 201104, end: 20110508
  6. PROCORALAN [Concomitant]
     Dates: start: 1998
  7. TEMERIT [Concomitant]
     Dates: start: 2011
  8. CRESTOR [Concomitant]
     Dates: start: 2000
  9. FUROSEMIDE [Concomitant]
     Dates: start: 20110511, end: 20110511
  10. AUGMENTIN [Concomitant]
     Dates: start: 20110511, end: 201105
  11. ASPEGIC [Concomitant]
     Dates: start: 1998, end: 201106
  12. CORTANCYL [Concomitant]
     Dates: start: 2000, end: 201106

REACTIONS (3)
  - Malignant neoplasm progression [Fatal]
  - Pancytopenia [Recovered/Resolved]
  - Epistaxis [Recovered/Resolved]
